FAERS Safety Report 18022275 (Version 2)
Quarter: 2020Q3

REPORT INFORMATION
  Report Type: Spontaneous
  Country: US (occurrence: US)
  Receive Date: 20200714
  Receipt Date: 20200730
  Transmission Date: 20201103
  Serious: Yes (Death, Life-Threatening, Hospitalization, Other)
  Sender: FDA-Public Use
  Company Number: NVSC2020US196914

PATIENT
  Age: 19 Year
  Sex: Male
  Weight: 85 kg

DRUGS (5)
  1. SILTUXIMAB [Concomitant]
     Active Substance: SILTUXIMAB
     Indication: PRODUCT USED FOR UNKNOWN INDICATION
     Dosage: UNK
     Route: 065
     Dates: start: 20200626
  2. TOCILIZUMAB. [Concomitant]
     Active Substance: TOCILIZUMAB
     Indication: PRODUCT USED FOR UNKNOWN INDICATION
     Dosage: UNK
     Route: 065
  3. KYMRIAH [Suspect]
     Active Substance: TISAGENLECLEUCEL
     Indication: DIFFUSE LARGE B-CELL LYMPHOMA
     Dosage: 2.57 DF (150 X 10E6), ONCE/SINGLE
     Route: 042
     Dates: start: 20200528
  4. DEXAMETHASONE. [Concomitant]
     Active Substance: DEXAMETHASONE
     Indication: PRODUCT USED FOR UNKNOWN INDICATION
     Dosage: UNK
     Route: 065
     Dates: start: 20200625
  5. ANAKINRA [Concomitant]
     Active Substance: ANAKINRA
     Indication: PRODUCT USED FOR UNKNOWN INDICATION
     Dosage: UNK
     Route: 065

REACTIONS (10)
  - Hyperammonaemia [Unknown]
  - Diffuse large B-cell lymphoma [Fatal]
  - Coagulopathy [Unknown]
  - Immune effector cell-associated neurotoxicity syndrome [Unknown]
  - Serum ferritin increased [Unknown]
  - Hepatic failure [Fatal]
  - Lactic acidosis [Unknown]
  - Transaminases increased [Unknown]
  - Haemophagocytic lymphohistiocytosis [Unknown]
  - Malignant neoplasm progression [Fatal]

NARRATIVE: CASE EVENT DATE: 20200625
